FAERS Safety Report 14916556 (Version 2)
Quarter: 2019Q4

REPORT INFORMATION
  Report Type: Report from Study
  Country: CZ (occurrence: CZ)
  Receive Date: 20180519
  Receipt Date: 20191128
  Transmission Date: 20200122
  Serious: Yes (Hospitalization, Other)
  Sender: FDA-Public Use
  Company Number: CZ-AUROBINDO-AUR-APL-2018-026023

PATIENT
  Age: 45 Year

DRUGS (1)
  1. METFORMIN [Suspect]
     Active Substance: METFORMIN HYDROCHLORIDE
     Indication: PRODUCT USED FOR UNKNOWN INDICATION
     Dosage: UNK
     Route: 048

REACTIONS (15)
  - Anion gap increased [Unknown]
  - Blood pH decreased [Unknown]
  - Hypocapnia [Unknown]
  - Base excess decreased [Unknown]
  - Blood bicarbonate decreased [Unknown]
  - Creatinine renal clearance decreased [Recovering/Resolving]
  - Lactic acidosis [Unknown]
  - Acute kidney injury [Recovering/Resolving]
  - Toxicity to various agents [Unknown]
  - Hypochloraemia [Recovering/Resolving]
  - PCO2 decreased [Unknown]
  - Blood creatinine increased [Recovering/Resolving]
  - Hyponatraemia [Recovering/Resolving]
  - Hypovolaemia [Unknown]
  - Gastrointestinal disorder [Unknown]

NARRATIVE: CASE EVENT DATE: 2012
